FAERS Safety Report 7985671-5 (Version None)
Quarter: 2011Q4

REPORT INFORMATION
  Report Type: 
  Country: None (occurrence: None)
  Receive Date: 20111216
  Receipt Date: 20111202
  Transmission Date: 20120403
  Serious: Yes (Life-Threatening)
  Sender: FDA-Public Use
  Company Number: IT-CELGENEUS-083-50794-11110859

PATIENT
  Sex: Female

DRUGS (11)
  1. DIFLUCAN [Concomitant]
     Route: 065
  2. FOLINA [Concomitant]
     Route: 065
  3. CARDIAZOL-PARACODINA [Concomitant]
     Dosage: 15 DROPS
     Route: 065
  4. VIDAZA [Suspect]
     Indication: MYELODYSPLASTIC SYNDROME
     Dosage: 75 MILLIGRAM/SQ. METER
     Route: 058
     Dates: start: 20110617, end: 20110623
  5. LEVOFLOXACIN [Concomitant]
     Route: 065
  6. BENEXOL [Concomitant]
     Route: 065
  7. ACETAMINOPHEN [Concomitant]
     Route: 065
  8. GADRAL [Concomitant]
     Route: 065
  9. DECADRON [Concomitant]
     Route: 065
  10. ZOFRAN [Concomitant]
     Route: 065
  11. SELEPARINA [Concomitant]
     Route: 065

REACTIONS (4)
  - METABOLIC ACIDOSIS [None]
  - PYREXIA [None]
  - SEPTIC SHOCK [None]
  - MYOCARDITIS [None]
